FAERS Safety Report 12669296 (Version 1)
Quarter: 2016Q3

REPORT INFORMATION
  Report Type: Spontaneous
  Country: CN (occurrence: CN)
  Receive Date: 20160819
  Receipt Date: 20160819
  Transmission Date: 20161109
  Serious: Yes (Other)
  Sender: FDA-Public Use
  Company Number: CN-PFIZER INC-2016387557

PATIENT
  Age: 62 Year
  Sex: Male
  Weight: 56 kg

DRUGS (7)
  1. ZYVOX [Suspect]
     Active Substance: LINEZOLID
     Indication: PULMONARY TUBERCULOSIS
     Dosage: 0.6 G, 2X/DAY
     Route: 041
     Dates: start: 20160612, end: 20160622
  2. ZYVOX [Suspect]
     Active Substance: LINEZOLID
     Indication: ABDOMINAL INFECTION
  3. DIFLUCAN [Concomitant]
     Active Substance: FLUCONAZOLE
     Indication: PNEUMONIA FUNGAL
     Dosage: 0.2 G, 2X/DAY
     Route: 041
     Dates: start: 20160614, end: 20160622
  4. GLUTATHIONE [Concomitant]
     Active Substance: GLUTATHIONE
     Indication: LIVER INJURY
     Dosage: 0.9 G, 1X/DAY
     Route: 041
     Dates: start: 20160612, end: 20160629
  5. ZYVOX [Suspect]
     Active Substance: LINEZOLID
     Indication: SKIN INFECTION
  6. BIAPENEM [Concomitant]
     Active Substance: BIAPENEM
     Indication: ABDOMINAL INFECTION
     Dosage: 0.3 G, 3X/DAY
     Route: 041
     Dates: start: 20160612, end: 20160622
  7. ENTECAVIR. [Concomitant]
     Active Substance: ENTECAVIR
     Indication: CHRONIC HEPATITIS B
     Dosage: 0.5 MG, 1X/DAY
     Route: 048
     Dates: start: 20160612, end: 20160629

REACTIONS (3)
  - Lactic acidosis [Recovering/Resolving]
  - Pulmonary haemorrhage [Recovering/Resolving]
  - Platelet count decreased [Recovering/Resolving]

NARRATIVE: CASE EVENT DATE: 20160622
